FAERS Safety Report 14386119 (Version 1)
Quarter: 2018Q1

REPORT INFORMATION
  Report Type: Report from Study
  Country: US (occurrence: US)
  Receive Date: 20180115
  Receipt Date: 20180115
  Transmission Date: 20180509
  Serious: No
  Sender: FDA-Public Use
  Company Number: US-TAKEDA-2018TUS000630

PATIENT
  Sex: Female

DRUGS (1)
  1. PONATINIB [Suspect]
     Active Substance: PONATINIB
     Indication: CHRONIC MYELOID LEUKAEMIA
     Dosage: 15 MG, QD
     Route: 048
     Dates: start: 201402

REACTIONS (13)
  - Anxiety [Unknown]
  - Chest pain [Unknown]
  - Asthenia [Unknown]
  - Iron deficiency anaemia [Unknown]
  - Night sweats [Unknown]
  - Insomnia [Unknown]
  - Pain [Unknown]
  - Drug dose omission [Unknown]
  - Headache [Unknown]
  - Dizziness [Unknown]
  - Depression [Unknown]
  - Weight decreased [Unknown]
  - Decreased appetite [Unknown]
